FAERS Safety Report 4889678-6 (Version None)
Quarter: 2006Q1

REPORT INFORMATION
  Report Type: 
  Country: None (occurrence: None)
  Receive Date: 20060124
  Receipt Date: 20060109
  Transmission Date: 20060701
  Serious: Yes (Hospitalization, Other)
  Sender: FDA-Public Use
  Company Number: US-AMGEN-US164127

PATIENT
  Sex: Male
  Weight: 118.9 kg

DRUGS (13)
  1. ENBREL [Suspect]
     Indication: PSORIATIC ARTHROPATHY
     Route: 058
     Dates: start: 20041201, end: 20051101
  2. TPN [Concomitant]
  3. LASIX [Concomitant]
  4. POTASSIUM CHLORIDE [Concomitant]
  5. EVISTA [Concomitant]
  6. THYROXINE [Concomitant]
  7. LIPITOR [Concomitant]
  8. GLYBURIDE [Concomitant]
  9. AVANDIA [Concomitant]
  10. PROZAC [Concomitant]
  11. PRILOSEC [Concomitant]
  12. MULTIVITAMIN [Concomitant]
  13. CALCIUM GLUCONATE [Concomitant]

REACTIONS (4)
  - CLUMSINESS [None]
  - CONVULSION [None]
  - FALL [None]
  - GAIT DISTURBANCE [None]
